FAERS Safety Report 6292907-8 (Version None)
Quarter: 2009Q3

REPORT INFORMATION
  Report Type: 
  Country: None (occurrence: None)
  Receive Date: 20090731
  Receipt Date: 20090724
  Transmission Date: 20100115
  Serious: Yes (Other)
  Sender: FDA-Public Use
  Company Number: US-CELGENEUS-163-20785-09052031

PATIENT
  Sex: Female

DRUGS (3)
  1. THALOMID [Suspect]
     Route: 048
     Dates: start: 20071015
  2. THALOMID [Suspect]
     Route: 048
     Dates: start: 20061101, end: 20070814
  3. THALOMID [Suspect]
     Dosage: 200MG-400MG
     Route: 048
     Dates: start: 20060701, end: 20061001

REACTIONS (1)
  - BLOOD HUMAN CHORIONIC GONADOTROPIN INCREASED [None]
